FAERS Safety Report 7586899-9 (Version None)
Quarter: 2011Q3

REPORT INFORMATION
  Report Type: 
  Country: None (occurrence: None)
  Receive Date: 20110701
  Receipt Date: 20110628
  Transmission Date: 20111222
  Serious: Yes (Hospitalization, Other)
  Sender: FDA-Public Use
  Company Number: US-CEPHALON-2011003358

PATIENT
  Sex: Male

DRUGS (3)
  1. TREANDA [Suspect]
     Indication: T-CELL LYMPHOMA STAGE IV
     Route: 042
     Dates: start: 20110516
  2. TREANDA [Suspect]
     Route: 042
     Dates: start: 20110614
  3. ACYCLOVIR [Concomitant]

REACTIONS (7)
  - CHILLS [None]
  - PYREXIA [None]
  - DYSPNOEA [None]
  - PANCYTOPENIA [None]
  - PYELONEPHRITIS [None]
  - UROSEPSIS [None]
  - TREMOR [None]
